FAERS Safety Report 20527292 (Version 1)
Quarter: 2022Q1

REPORT INFORMATION
  Report Type: Spontaneous
  Country: US (occurrence: None)
  Receive Date: 20220228
  Receipt Date: 20220228
  Transmission Date: 20220424
  Serious: No
  Sender: FDA-Public Use
  Company Number: None

PATIENT
  Age: 37 Year
  Sex: Female
  Weight: 99.79 kg

DRUGS (1)
  1. XYOSTED [Suspect]
     Active Substance: TESTOSTERONE ENANTHATE

REACTIONS (6)
  - Injection site pain [None]
  - Device malfunction [None]
  - Injection site haemorrhage [None]
  - Needle issue [None]
  - Injection site swelling [None]
  - Suspected product quality issue [None]

NARRATIVE: CASE EVENT DATE: 20220227
